FAERS Safety Report 6387849-3 (Version None)
Quarter: 2009Q4

REPORT INFORMATION
  Report Type: 
  Country: None (occurrence: None)
  Receive Date: 20091005
  Receipt Date: 20090929
  Transmission Date: 20100525
  Serious: Yes (Hospitalization)
  Sender: FDA-Public Use
  Company Number: JP-BAYER-200912260BYL

PATIENT
  Age: 80 Year
  Sex: Male

DRUGS (7)
  1. NEXAVAR [Suspect]
     Indication: HEPATIC NEOPLASM MALIGNANT
     Dosage: TOTAL DAILY DOSE: 800 MG  UNIT DOSE: 200 MG
     Route: 048
     Dates: start: 20090603, end: 20090715
  2. ALDACTONE [Concomitant]
     Dosage: UNIT DOSE: 25 MG
     Route: 048
  3. PORTOLAC [Concomitant]
     Dosage: UNIT DOSE: 6 G
     Route: 048
  4. LASIX [Concomitant]
     Dosage: UNIT DOSE: 40 MG
     Route: 048
  5. PARIET [Concomitant]
     Indication: PROPHYLAXIS
     Dosage: UNIT DOSE: 10 MG
     Route: 048
  6. ATELEC [Concomitant]
     Dosage: UNIT DOSE: 10 MG
     Route: 048
  7. NORVASC [Concomitant]
     Dosage: UNIT DOSE: 8 MG
     Route: 048

REACTIONS (5)
  - ASCITES [None]
  - COMA HEPATIC [None]
  - DIARRHOEA [None]
  - MALAISE [None]
  - STOMATITIS [None]
